FAERS Safety Report 10265395 (Version 2)
Quarter: 2014Q4

REPORT INFORMATION
  Report Type: Spontaneous
  Country: DK (occurrence: DK)
  Receive Date: 20140627
  Receipt Date: 20141219
  Transmission Date: 20150528
  Serious: Yes (Hospitalization)
  Sender: FDA-Public Use
  Company Number: DK-ACTAVIS-2014-13559

PATIENT
  Age: 66 Year
  Sex: Female
  Weight: 75 kg

DRUGS (5)
  1. FLUOROURACIL. [Suspect]
     Active Substance: FLUOROURACIL
     Indication: BREAST CANCER
     Dosage: 900 MG, 1/ THREE WEEKS; DATE OF LAST DOSE PRIOR TO ONSET AE: 06/JUN/2012
     Route: 042
     Dates: start: 20120606
  2. LANSOPRAZOLE. [Concomitant]
     Active Substance: LANSOPRAZOLE
     Indication: PRODUCT USED FOR UNKNOWN INDICATION
     Dosage: UNK
     Route: 065
     Dates: start: 20120813
  3. CYCLOPHOSPHAMIDE (UNKNOWN) [Suspect]
     Active Substance: CYCLOPHOSPHAMIDE
     Indication: BREAST CANCER
     Dosage: 900 MG, 1/ THREE WEEKS;  DATE OF LAST DOSE PRIOR TO ONSET OF AE:06/JUN/2012
     Route: 042
     Dates: start: 20120606, end: 20120808
  4. EPIRUBICIN [Suspect]
     Active Substance: EPIRUBICIN
     Indication: BREAST CANCER
     Dosage: 160 MG, 1/ THREE WEEKS; DATE OF LAST DOSE PRIOR TO ONSET OF AE:06/JUN2012
     Route: 042
     Dates: start: 20120606
  5. CYCLOPHOSPHAMIDE (UNKNOWN) [Suspect]
     Active Substance: CYCLOPHOSPHAMIDE
     Dosage: UNK
     Route: 042
     Dates: start: 20120813

REACTIONS (3)
  - Sepsis [Recovered/Resolved]
  - Skin infection [Recovered/Resolved]
  - Febrile neutropenia [Recovered/Resolved]

NARRATIVE: CASE EVENT DATE: 10120820
